FAERS Safety Report 23971715 (Version 1)
Quarter: 2024Q2

REPORT INFORMATION
  Report Type: Spontaneous
  Country: US (occurrence: None)
  Receive Date: 20240612
  Receipt Date: 20240612
  Transmission Date: 20240715
  Serious: Yes (Hospitalization)
  Sender: FDA-Public Use
  Company Number: None

PATIENT
  Age: 44 Year
  Sex: Female
  Weight: 58.5 kg

DRUGS (1)
  1. MISOPROSTOL [Suspect]
     Active Substance: MISOPROSTOL
     Indication: Biopsy endometrium
     Dosage: OTHER FREQUENCY : 8-10 HR BEFR PROCD;?
     Route: 067
     Dates: start: 20240605, end: 20240605

REACTIONS (6)
  - Diarrhoea [None]
  - Muscle spasms [None]
  - Pain [None]
  - Vomiting [None]
  - Back pain [None]
  - Vaginal haemorrhage [None]

NARRATIVE: CASE EVENT DATE: 20240605
